FAERS Safety Report 23350731 (Version 1)
Quarter: 2023Q4

REPORT INFORMATION
  Report Type: Spontaneous
  Country: US (occurrence: None)
  Receive Date: 20231228
  Receipt Date: 20231228
  Transmission Date: 20240110
  Serious: Yes (Other)
  Sender: FDA-Public Use
  Company Number: None

PATIENT
  Age: 73 Year
  Sex: Female
  Weight: 44.1 kg

DRUGS (4)
  1. RECLAST [Suspect]
     Active Substance: ZOLEDRONIC ACID
     Indication: Osteoporosis
     Route: 042
     Dates: start: 20231215, end: 20231215
  2. ALBUTEROL [Concomitant]
     Active Substance: ALBUTEROL
  3. Vitimin D [Concomitant]
  4. CALCIUM [Concomitant]
     Active Substance: CALCIUM

REACTIONS (12)
  - Infusion related reaction [None]
  - Malaise [None]
  - Arthralgia [None]
  - Headache [None]
  - Dizziness [None]
  - Retching [None]
  - Asthma [None]
  - Pain in jaw [None]
  - Toothache [None]
  - Decreased appetite [None]
  - Fatigue [None]
  - Back pain [None]

NARRATIVE: CASE EVENT DATE: 20231215
